FAERS Safety Report 22962935 (Version 2)
Quarter: 2023Q4

REPORT INFORMATION
  Report Type: Spontaneous
  Country: JP (occurrence: JP)
  Receive Date: 20230920
  Receipt Date: 20231006
  Transmission Date: 20240110
  Serious: Yes (Hospitalization)
  Sender: FDA-Public Use
  Company Number: JP-GSKNCCC-Case-01797964_AE-74600

PATIENT

DRUGS (8)
  1. LAMICTAL [Suspect]
     Active Substance: LAMOTRIGINE
     Indication: Epilepsy
     Dosage: UNK
     Route: 048
     Dates: start: 20180528
  2. LAMICTAL [Suspect]
     Active Substance: LAMOTRIGINE
     Dosage: 105 MG, QD
     Route: 048
  3. LAMICTAL [Suspect]
     Active Substance: LAMOTRIGINE
     Dosage: 100 MG, QD
     Route: 048
  4. LAMICTAL [Suspect]
     Active Substance: LAMOTRIGINE
     Dosage: 94 MG, QD
     Route: 048
  5. LAMICTAL [Suspect]
     Active Substance: LAMOTRIGINE
     Dosage: 89 MG, QD
     Route: 048
  6. LAMICTAL [Suspect]
     Active Substance: LAMOTRIGINE
     Dosage: 84 MG, QD
     Route: 048
  7. PHENOBARBITAL [Concomitant]
     Active Substance: PHENOBARBITAL
     Dosage: 60 MG, QD
     Route: 048
     Dates: start: 20170716
  8. LEVETIRACETAM [Concomitant]
     Active Substance: LEVETIRACETAM
     Dosage: 3000 MG, QD, START DATE: PREVIOUS FACILITY

REACTIONS (3)
  - Eyelid function disorder [Unknown]
  - Asthenopia [Unknown]
  - Onychoclasis [Not Recovered/Not Resolved]

NARRATIVE: CASE EVENT DATE: 20230830
